FAERS Safety Report 25879332 (Version 2)
Quarter: 2025Q4

REPORT INFORMATION
  Report Type: Report from Study
  Country: CA (occurrence: CA)
  Receive Date: 20251003
  Receipt Date: 20251117
  Transmission Date: 20260117
  Serious: Yes (Death, Hospitalization, Other)
  Sender: HLS THERAPEUTICS
  Company Number: CA-HLS-202502507

PATIENT
  Sex: Female

DRUGS (17)
  1. CLOZARIL [Suspect]
     Active Substance: CLOZAPINE
     Indication: Product used for unknown indication
     Dosage: 400 MG AT BEDTIME AND 350 MG AT BEDTIME
     Route: 048
     Dates: start: 20100305
  2. CHOLECALCIFEROL [Concomitant]
     Active Substance: CHOLECALCIFEROL
     Indication: Product used for unknown indication
     Dosage: 1000 UNIT
     Route: 048
  3. MAGNESIUM HYDROXIDE [Concomitant]
     Active Substance: MAGNESIUM HYDROXIDE
     Indication: Product used for unknown indication
     Route: 048
  4. ACETAMINOPHEN [Concomitant]
     Active Substance: ACETAMINOPHEN
     Indication: Product used for unknown indication
     Route: 048
  5. Multivitamin Tablet [Concomitant]
     Indication: Product used for unknown indication
     Dosage: 1 TAB DAILY
     Route: 048
  6. acetaminophen-codeine-caffeine [Concomitant]
     Indication: Product used for unknown indication
     Dosage: 2 TAB BID
     Route: 048
  7. Perindopril erbumine and indapamide [Concomitant]
     Indication: Product used for unknown indication
     Route: 048
  8. SYNTHROID [Concomitant]
     Active Substance: LEVOTHYROXINE SODIUM
     Indication: Product used for unknown indication
     Route: 048
  9. CALCIUM CITRATE [Concomitant]
     Active Substance: CALCIUM CITRATE
     Indication: Product used for unknown indication
     Route: 048
  10. LEVOTHYROXINE [Concomitant]
     Active Substance: LEVOTHYROXINE
     Indication: Product used for unknown indication
     Route: 048
  11. HALOPERIDOL [Concomitant]
     Active Substance: HALOPERIDOL
     Indication: Product used for unknown indication
     Dosage: 1-2.5 MG EVERY 8 HRS OR AS NEEDED
     Route: 048
  12. ADVAIR HFA [Concomitant]
     Active Substance: FLUTICASONE PROPIONATE\SALMETEROL XINAFOATE
     Indication: Product used for unknown indication
     Dosage: 1 INHALATION BID
     Route: 065
  13. CANESTEN CREAM [Concomitant]
     Active Substance: CLOTRIMAZOLE
     Indication: Fungal infection
     Dosage: 1 APPLICATION BID OR AS NEEDED
     Route: 065
  14. MELATONIN [Concomitant]
     Active Substance: MELATONIN
     Indication: Product used for unknown indication
     Dosage: AT BEDTIME
     Route: 065
  15. PANTOPRAZOLE SODIUM [Concomitant]
     Active Substance: PANTOPRAZOLE SODIUM
     Indication: Product used for unknown indication
     Route: 048
  16. POTASSIUM CHLORIDE [Concomitant]
     Active Substance: POTASSIUM CHLORIDE
     Indication: Product used for unknown indication
     Dosage: BID
     Route: 048
  17. TRAZODONE [Concomitant]
     Active Substance: TRAZODONE HYDROCHLORIDE
     Indication: Product used for unknown indication
     Dosage: 50-100MG AT BEDTIME AS NEEDED
     Route: 065

REACTIONS (5)
  - Delirium [Unknown]
  - General physical health deterioration [Unknown]
  - Death [Fatal]
  - Osteonecrosis [Unknown]
  - Arthritis bacterial [Unknown]
